FAERS Safety Report 18546854 (Version 1)
Quarter: 2020Q4

REPORT INFORMATION
  Report Type: Spontaneous
  Country: GB (occurrence: GB)
  Receive Date: 20201125
  Receipt Date: 20201125
  Transmission Date: 20210114
  Serious: Yes (Other)
  Sender: FDA-Public Use
  Company Number: NVSC2020GB304252

PATIENT
  Age: 70 Year
  Sex: Female

DRUGS (3)
  1. MTX HEXAL [Suspect]
     Active Substance: METHOTREXATE SODIUM
     Indication: PRODUCT USED FOR UNKNOWN INDICATION
     Dosage: UNK
     Route: 065
  2. BENEPALI [Suspect]
     Active Substance: ETANERCEPT
     Indication: RHEUMATOID ARTHRITIS
     Dosage: 50 MG,QW
     Route: 058
  3. BENEPALI [Suspect]
     Active Substance: ETANERCEPT
     Dosage: 50 MG,QW
     Route: 058

REACTIONS (4)
  - Malaise [Unknown]
  - Rheumatoid arthritis [Unknown]
  - Drug level decreased [Unknown]
  - Pain [Unknown]
